FAERS Safety Report 7146287-6 (Version None)
Quarter: 2010Q4

REPORT INFORMATION
  Report Type: 
  Country: None (occurrence: None)
  Receive Date: 20101208
  Receipt Date: 20101129
  Transmission Date: 20110411
  Serious: Yes (Hospitalization)
  Sender: FDA-Public Use
  Company Number: JP-ABBOTT-10P-087-0663593-00

PATIENT
  Sex: Female
  Weight: 41 kg

DRUGS (24)
  1. HUMIRA [Suspect]
     Indication: RHEUMATOID ARTHRITIS
     Route: 058
     Dates: start: 20100126
  2. PREDNISOLONE [Concomitant]
     Indication: RHEUMATOID ARTHRITIS
     Dates: start: 20100205, end: 20100415
  3. PREDNISOLONE [Concomitant]
     Dates: start: 20100416, end: 20100513
  4. PREDNISOLONE [Concomitant]
     Dates: start: 20100514, end: 20100617
  5. PREDNISOLONE [Concomitant]
     Dates: start: 20100618
  6. PREDNISOLONE [Concomitant]
     Route: 048
     Dates: end: 20100204
  7. WARFARIN POTASSIUM [Concomitant]
     Indication: PRODUCT USED FOR UNKNOWN INDICATION
     Dates: start: 20100314, end: 20100408
  8. WARFARIN POTASSIUM [Concomitant]
     Dates: start: 20100409, end: 20100520
  9. WARFARIN POTASSIUM [Concomitant]
     Dates: start: 20100521
  10. WARFARIN POTASSIUM [Concomitant]
     Dates: end: 20100313
  11. SULFAMETHOXAZOLE AND TRIMETHOPRIM [Concomitant]
     Indication: ANTIFUNGAL PROPHYLAXIS
     Dates: start: 20100402
  12. SULFAMETHOXAZOLE AND TRIMETHOPRIM [Concomitant]
     Dates: end: 20100401
  13. SPHERICAL CARBONACEOUS ADSORBENT [Concomitant]
     Indication: PRODUCT USED FOR UNKNOWN INDICATION
     Dosage: 6 GRAM
     Dates: start: 20100319
  14. SODIUM RISEDRONATE HYDRATE [Concomitant]
     Indication: PRODUCT USED FOR UNKNOWN INDICATION
     Dosage: 17.5MG/W
  15. LANSOPRAZOLE [Concomitant]
     Indication: PRODUCT USED FOR UNKNOWN INDICATION
     Dosage: 15MG DAILY
     Dates: start: 20100312, end: 20100516
  16. ALFACALCIDOL [Concomitant]
     Indication: PRODUCT USED FOR UNKNOWN INDICATION
     Dosage: 1 MICROGRAM
  17. ISONIAZID [Concomitant]
     Indication: ANTIBIOTIC PROPHYLAXIS
  18. RABEPRAZOLE SODIUM [Concomitant]
     Indication: GASTRITIS PROPHYLAXIS
     Dosage: 10MG DAILY
     Dates: end: 20100311
  19. BIFIDOBACTERIUM [Concomitant]
     Indication: ENTEROCOLITIS
     Dosage: 2 G
     Dates: end: 20100325
  20. BIFIDOBACTERIUM [Concomitant]
     Indication: PROPHYLAXIS
  21. REBAMIPIDE [Concomitant]
     Indication: GASTRITIS PROPHYLAXIS
  22. TRANEXAMIC ACID [Concomitant]
     Indication: PRODUCT USED FOR UNKNOWN INDICATION
     Dosage: 750 MG DAILY
     Dates: end: 20100325
  23. ASCORBIC ACID/CALCIUM PANTOTHENATE [Concomitant]
     Indication: PRODUCT USED FOR UNKNOWN INDICATION
     Dosage: 600MG DAILY
     Dates: end: 20100325
  24. ETIZOLAM [Concomitant]
     Dosage: 0.5MG DAILY

REACTIONS (4)
  - ANAEMIA [None]
  - DEEP VEIN THROMBOSIS [None]
  - GASTRITIS HAEMORRHAGIC [None]
  - OESOPHAGEAL CANDIDIASIS [None]
